FAERS Safety Report 13703637 (Version 1)
Quarter: 2017Q2

REPORT INFORMATION
  Report Type: Spontaneous
  Country: US (occurrence: US)
  Receive Date: 20170629
  Receipt Date: 20170629
  Transmission Date: 20170830
  Serious: No
  Sender: FDA-Public Use
  Company Number: US-PRESTIGE BRANDS -2022742

PATIENT
  Age: 37 Year
  Sex: Female

DRUGS (1)
  1. NIX [Suspect]
     Active Substance: PERMETHRIN
     Indication: LICE INFESTATION
     Route: 061
     Dates: start: 20170204, end: 20170212

REACTIONS (2)
  - Drug ineffective [Not Recovered/Not Resolved]
  - Cough [Not Recovered/Not Resolved]

NARRATIVE: CASE EVENT DATE: 20170204
